FAERS Safety Report 5791040 (Version 1)
Quarter: 2020Q3

REPORT INFORMATION
  Report Type: Spontaneous
  Country: US (occurrence: None)
  Receive Date: 19920917
  Receipt Date: 19920917
  Transmission Date: 20201105
  Serious: No
  Sender: FDA-Public Use
  Company Number: None

PATIENT

DRUGS (2)
  1. ASCORBIC ACID\ERGOCALCIFEROL\NIACIN\RIBOFLAVIN\THIAMINE\VITAMIN A. [Suspect]
     Active Substance: ASCORBIC ACID\ERGOCALCIFEROL\NIACIN\RIBOFLAVIN\THIAMINE\VITAMIN A
  2. PHENAZOPYRIDINE. [Suspect]
     Active Substance: PHENAZOPYRIDINE
     Dosage: TABLET

REACTIONS (1)
  - Medication error [None]
